FAERS Safety Report 8683109 (Version 2)
Quarter: 2013Q4

REPORT INFORMATION
  Report Type: Spontaneous
  Country: US (occurrence: US)
  Receive Date: 20120725
  Receipt Date: 20131101
  Transmission Date: 20140711
  Serious: No
  Sender: FDA-Public Use
  Company Number: US-009507513-1207USA008388

PATIENT
  Sex: Male

DRUGS (1)
  1. DULERA [Suspect]

REACTIONS (1)
  - Dizziness [Unknown]
